FAERS Safety Report 10057791 (Version 1)
Quarter: 2014Q2

REPORT INFORMATION
  Report Type: Spontaneous
  Country: US (occurrence: US)
  Receive Date: 20140404
  Receipt Date: 20140404
  Transmission Date: 20141212
  Serious: Yes (Other)
  Sender: FDA-Public Use
  Company Number: US-JNJFOC-20140318810

PATIENT
  Sex: 0

DRUGS (4)
  1. REMICADE [Suspect]
     Indication: INFLAMMATORY BOWEL DISEASE
     Route: 042
  2. BENADRYL [Suspect]
     Indication: PREMEDICATION
     Route: 048
  3. SOLU MEDROL [Concomitant]
     Indication: PREMEDICATION
     Route: 065
  4. ACETAMINOPHEN [Concomitant]
     Indication: PREMEDICATION
     Route: 065

REACTIONS (1)
  - Arthralgia [Unknown]
